FAERS Safety Report 9939520 (Version 1)
Quarter: 2014Q1

REPORT INFORMATION
  Report Type: Report from Study
  Country: US (occurrence: US)
  Receive Date: 20140303
  Receipt Date: 20140303
  Transmission Date: 20141002
  Serious: No
  Sender: FDA-Public Use
  Company Number: US-ABBVIE-13P-163-1035260-00

PATIENT
  Age: 60 Year
  Sex: Male

DRUGS (8)
  1. HUMIRA [Suspect]
     Indication: RHEUMATOID ARTHRITIS
     Dates: start: 201003
  2. DIOVAN [Concomitant]
     Indication: HYPERTENSION
     Dosage: DAILY
  3. FOLIC ACID [Concomitant]
     Indication: PRODUCT USED FOR UNKNOWN INDICATION
     Dosage: DAILY
  4. METHOTREXATE [Concomitant]
     Indication: RHEUMATOID ARTHRITIS
     Dosage: 6 EVERY SAT
  5. ATENOLOL [Concomitant]
     Indication: HYPERTENSION
     Dosage: DAILY
  6. GABAPENTIN [Concomitant]
     Indication: NEURALGIA
  7. EFFEXOR XR [Concomitant]
     Indication: NEURALGIA
     Dosage: DAILY
  8. JANUMET [Concomitant]
     Indication: DIABETES MELLITUS
     Dosage: 50MG/1000MG

REACTIONS (3)
  - Drug dose omission [Unknown]
  - Tooth infection [Unknown]
  - Incorrect product storage [Unknown]
